FAERS Safety Report 7767963-8 (Version None)
Quarter: 2011Q3

REPORT INFORMATION
  Report Type: 
  Country: None (occurrence: None)
  Receive Date: 20110922
  Receipt Date: 20110524
  Transmission Date: 20111222
  Serious: Yes (Other)
  Sender: FDA-Public Use
  Company Number: US-ASTRAZENECA-2009UW12548

PATIENT
  Age: 44 Year
  Sex: Female

DRUGS (18)
  1. IBUPROFEN [Concomitant]
     Dates: start: 20060501
  2. PENICILLIN V POTASSIUM [Concomitant]
     Dates: start: 20060505
  3. PERCOCET [Concomitant]
     Indication: PAIN
     Route: 048
     Dates: start: 20080305
  4. COMPAZINE [Concomitant]
     Route: 048
     Dates: start: 20080305
  5. SEROQUEL [Suspect]
     Indication: ANXIETY
     Route: 048
     Dates: start: 20000101, end: 20080101
  6. PROZAC [Concomitant]
     Dates: start: 20060501
  7. TYLENOL-500 [Concomitant]
     Dates: start: 20060501
  8. SEROQUEL [Suspect]
     Route: 048
     Dates: start: 20060501
  9. SEROQUEL [Suspect]
     Route: 048
     Dates: start: 20060501
  10. PEPCID [Concomitant]
     Route: 048
     Dates: start: 20080305
  11. SEROQUEL [Suspect]
     Indication: INSOMNIA
     Route: 048
     Dates: start: 20000101, end: 20080101
  12. XANAX [Concomitant]
     Dates: start: 20060501
  13. XANAX [Concomitant]
     Route: 048
     Dates: start: 20080305
  14. VICODIN [Concomitant]
     Dates: start: 20060505
  15. SEROQUEL [Suspect]
     Route: 048
     Dates: start: 20080305
  16. SEROQUEL [Suspect]
     Route: 048
     Dates: start: 20080305
  17. PROZAC [Concomitant]
     Route: 048
     Dates: start: 20080305
  18. ANBESOL [Concomitant]
     Dates: start: 20060501

REACTIONS (1)
  - PANCREATITIS [None]
